FAERS Safety Report 5123587-2 (Version None)
Quarter: 2006Q4

REPORT INFORMATION
  Report Type: 
  Country: None (occurrence: None)
  Receive Date: 20061010
  Receipt Date: 20060929
  Transmission Date: 20070319
  Serious: Yes (Disabling)
  Sender: FDA-Public Use
  Company Number: DK-JNJFOC-20061000317

PATIENT
  Sex: Female

DRUGS (2)
  1. TOPIMAX [Suspect]
     Indication: EPILEPSY
     Dosage: 30 MG AND 45 MG
     Route: 048
  2. ORFINIL [Concomitant]
     Route: 065

REACTIONS (1)
  - HEMIPARESIS [None]
